FAERS Safety Report 4488629-6 (Version None)
Quarter: 2004Q4

REPORT INFORMATION
  Report Type: 
  Country: None (occurrence: None)
  Receive Date: 20041026
  Receipt Date: 20041012
  Transmission Date: 20050328
  Serious: Yes (Other)
  Sender: FDA-Public Use
  Company Number: USA041080741

PATIENT
  Age: 70 Year

DRUGS (3)
  1. ALIMTA [Suspect]
     Indication: MESOTHELIOMA
  2. GEMZAR [Suspect]
     Indication: MESOTHELIOMA
  3. CISPLATIN [Concomitant]

REACTIONS (1)
  - PNEUMONIA [None]
